FAERS Safety Report 9952840 (Version 2)
Quarter: 2014Q1

REPORT INFORMATION
  Report Type: Spontaneous
  Country: JP (occurrence: JP)
  Receive Date: 20140304
  Receipt Date: 20140327
  Transmission Date: 20141002
  Serious: Yes (Other)
  Sender: FDA-Public Use
  Company Number: JP-ELI_LILLY_AND_COMPANY-JP201402005941

PATIENT
  Age: 63 Year
  Sex: Male

DRUGS (3)
  1. GEMZAR [Suspect]
     Indication: GALLBLADDER CANCER STAGE IV
     Dosage: 1700 MG, WEEKLY (1/W)
     Route: 065
  2. GEMZAR [Suspect]
     Dosage: 1200 MG, WEEKLY (1/W)
     Route: 065
  3. GEMZAR [Suspect]
     Dosage: 1700 MG, WEEKLY (1/W)
     Route: 065

REACTIONS (1)
  - Tumour lysis syndrome [Recovering/Resolving]
